FAERS Safety Report 8280814-0 (Version None)
Quarter: 2012Q2

REPORT INFORMATION
  Report Type: 
  Country: None (occurrence: None)
  Receive Date: 20120412
  Receipt Date: 20120410
  Transmission Date: 20120825
  Serious: No
  Sender: FDA-Public Use
  Company Number: US-ABBOTT-12P-163-0921631-00

PATIENT
  Age: 18 Year
  Sex: Male

DRUGS (1)
  1. HUMIRA [Suspect]
     Indication: COLITIS ULCERATIVE
     Dates: start: 20120112

REACTIONS (5)
  - NECK MASS [None]
  - BOWEL MOVEMENT IRREGULARITY [None]
  - DYSURIA [None]
  - DYSPHAGIA [None]
  - APTYALISM [None]
